FAERS Safety Report 5102830-X (Version None)
Quarter: 2006Q3

REPORT INFORMATION
  Report Type: 
  Country: None (occurrence: None)
  Receive Date: 20060907
  Receipt Date: 20060829
  Transmission Date: 20061208
  Serious: Yes (Death)
  Sender: FDA-Public Use
  Company Number: 230038M06GBR

PATIENT
  Age: 35 Year
  Sex: Male

DRUGS (3)
  1. REBIF [Suspect]
     Indication: RELAPSING-REMITTING MULTIPLE SCLEROSIS
     Dosage: 22, 3 IN 1 WEEKS, SUBCUTANEOUS
     Route: 058
     Dates: start: 20040120
  2. PROPRANOLOL [Concomitant]
  3. DOSULEPIN [Concomitant]

REACTIONS (1)
  - COMPLETED SUICIDE [None]
